FAERS Safety Report 11359188 (Version 1)
Quarter: 2015Q3

REPORT INFORMATION
  Report Type: Spontaneous
  Country: US (occurrence: None)
  Receive Date: 20150807
  Receipt Date: 20150807
  Transmission Date: 20151125
  Serious: Yes (Disabling)
  Sender: FDA-Public Use
  Company Number: None

PATIENT
  Sex: Male
  Weight: 90.72 kg

DRUGS (15)
  1. QUETIAPINE GENERIC 600 MG QHS [Suspect]
     Active Substance: QUETIAPINE
     Indication: SLEEP DISORDER
     Route: 048
     Dates: start: 20150722, end: 20150723
  2. AMITRIPTYLINE [Concomitant]
     Active Substance: AMITRIPTYLINE
  3. BENZOTROPINE [Concomitant]
     Active Substance: BENZTROPINE
  4. LATUDA [Concomitant]
     Active Substance: LURASIDONE HYDROCHLORIDE
  5. CLOPIDOGREL [Concomitant]
     Active Substance: CLOPIDOGREL BISULFATE
  6. LANTUS [Concomitant]
     Active Substance: INSULIN GLARGINE
  7. LOSARTAN. [Concomitant]
     Active Substance: LOSARTAN
  8. METOPROLOL [Concomitant]
     Active Substance: METOPROLOL
  9. LEVOTHYROXIN [Concomitant]
     Active Substance: LEVOTHYROXINE
  10. HUMALOG [Concomitant]
     Active Substance: INSULIN LISPRO
  11. SEROQUEL [Concomitant]
     Active Substance: QUETIAPINE FUMARATE
  12. METFORMIN [Concomitant]
     Active Substance: METFORMIN HYDROCHLORIDE
  13. LORAZEPAM. [Concomitant]
     Active Substance: LORAZEPAM
  14. ANTACID [Concomitant]
     Active Substance: ALUMINUM HYDROXIDE\CALCIUM CARBONATE\DIMETHICONE\MAGNESIUM HYDROXIDE
  15. PRAVASTATIN [Concomitant]
     Active Substance: PRAVASTATIN\PRAVASTATIN SODIUM

REACTIONS (4)
  - Fall [None]
  - Asthenia [None]
  - Abasia [None]
  - Renal pain [None]

NARRATIVE: CASE EVENT DATE: 20150715
